FAERS Safety Report 9700693 (Version 1)
Quarter: 2013Q4

REPORT INFORMATION
  Report Type: Spontaneous
  Country: NL (occurrence: NL)
  Receive Date: 20131121
  Receipt Date: 20131121
  Transmission Date: 20140711
  Serious: Yes (Death, Hospitalization)
  Sender: FDA-Public Use
  Company Number: PHHY2013NL132699

PATIENT
  Age: 71 Year
  Sex: Female

DRUGS (5)
  1. DICLOFENAC [Suspect]
  2. PANTOPRAZOLE [Interacting]
  3. DABIGATRAN [Interacting]
     Indication: PROPHYLAXIS
     Dosage: 150 MG, UNK
  4. SIMVASTATIN [Concomitant]
  5. FERROUS FUMARATE [Concomitant]

REACTIONS (3)
  - Haemorrhagic stroke [Fatal]
  - Cerebrovascular accident [Fatal]
  - Thrombocytopenia [Unknown]
